FAERS Safety Report 6109128-1 (Version None)
Quarter: 2009Q1

REPORT INFORMATION
  Report Type: 
  Country: None (occurrence: None)
  Receive Date: 20090306
  Receipt Date: 20090223
  Transmission Date: 20090719
  Serious: Yes (Other)
  Sender: FDA-Public Use
  Company Number: 2009AP000670

PATIENT
  Age: 52 Year
  Sex: Female

DRUGS (10)
  1. CARBAMAZEPINE [Suspect]
     Indication: EPILEPSY
     Dosage: 200 MG; BID; PO
     Route: 048
  2. CYCLOPHOSPHAMIDE [Suspect]
     Indication: CHEMOTHERAPY
     Dosage: 1000 MG/M^2; QD
  3. THIOTEPA [Suspect]
     Indication: CHEMOTHERAPY
     Dosage: 80 MG/M^2;QD
  4. CARBOPLATIN [Concomitant]
  5. MESNA [Concomitant]
  6. CIPROFLOXACIN [Concomitant]
  7. FLUCONAZOLE [Concomitant]
  8. DEXAMETHASONE TAB [Concomitant]
  9. GRANISETRON  HCL [Concomitant]
  10. VIGABATRIN (VIGABATRIN) [Concomitant]

REACTIONS (6)
  - DRUG CLEARANCE INCREASED [None]
  - DRUG INTERACTION [None]
  - DRUG TOXICITY [None]
  - ENZYME INDUCTION [None]
  - NAUSEA [None]
  - VOMITING [None]
